FAERS Safety Report 15367479 (Version 1)
Quarter: 2018Q3

REPORT INFORMATION
  Report Type: Report from Study
  Country: US (occurrence: US)
  Receive Date: 20180910
  Receipt Date: 20180910
  Transmission Date: 20181010
  Serious: Yes (Other)
  Sender: FDA-Public Use
  Company Number: US-SA-2018SA246346

PATIENT
  Age: 51 Year
  Sex: Female

DRUGS (1)
  1. ALEMTUZUMAB [Suspect]
     Active Substance: ALEMTUZUMAB
     Dosage: 12 MG
     Route: 041
     Dates: start: 20180604, end: 20180608

REACTIONS (5)
  - Cognitive disorder [Unknown]
  - General physical health deterioration [Unknown]
  - Rehabilitation therapy [Unknown]
  - Poor venous access [Unknown]
  - Bedridden [Unknown]
